FAERS Safety Report 5031141-6 (Version None)
Quarter: 2006Q2

REPORT INFORMATION
  Report Type: 
  Country: None (occurrence: None)
  Receive Date: 20060615
  Receipt Date: 20060531
  Transmission Date: 20061013
  Serious: Yes (Hospitalization)
  Sender: FDA-Public Use
  Company Number: SPVI-2006-00038

PATIENT
  Age: 43 Year
  Sex: Female

DRUGS (4)
  1. PENTASA [Suspect]
     Indication: CROHN'S DISEASE
     Dosage: 1000 MG, 3X/DAY: TID, ORAL
     Route: 048
     Dates: start: 20030414, end: 20060414
  2. SULFASALAZINE [Suspect]
     Indication: COLITIS ULCERATIVE
     Dosage: ORAL
     Route: 048
  3. RABEPRAZOLE SODIUM [Concomitant]
  4. FERRIC PYROPHOSPHATE (FERRIC PYROPHOSPHATE) [Concomitant]

REACTIONS (2)
  - PYREXIA [None]
  - RENAL TUBULAR ACIDOSIS [None]
